FAERS Safety Report 15553886 (Version 1)
Quarter: 2018Q4

REPORT INFORMATION
  Report Type: Spontaneous
  Country: US (occurrence: US)
  Receive Date: 20181026
  Receipt Date: 20181026
  Transmission Date: 20190205
  Serious: No
  Sender: FDA-Public Use
  Company Number: US-SHIRE-US201838165

PATIENT
  Age: 10 Year
  Sex: Male

DRUGS (2)
  1. VYVANSE [Suspect]
     Active Substance: LISDEXAMFETAMINE DIMESYLATE
     Indication: OFF LABEL USE
     Dosage: 20 MG, UNK
     Route: 065
     Dates: start: 20180904
  2. VYVANSE [Suspect]
     Active Substance: LISDEXAMFETAMINE DIMESYLATE
     Indication: ATTENTION DEFICIT/HYPERACTIVITY DISORDER
     Dosage: 20 MG, UNK
     Route: 065
     Dates: start: 201709

REACTIONS (7)
  - Headache [Unknown]
  - Product dose omission [Unknown]
  - Product taste abnormal [Unknown]
  - Irritability [Unknown]
  - Decreased appetite [Unknown]
  - Dysgeusia [Unknown]
  - Off label use [Unknown]

NARRATIVE: CASE EVENT DATE: 201809
